FAERS Safety Report 25398787 (Version 2)
Quarter: 2025Q3

REPORT INFORMATION
  Report Type: Report from Study
  Country: US (occurrence: US)
  Receive Date: 20250604
  Receipt Date: 20250725
  Transmission Date: 20251021
  Serious: Yes (Other)
  Sender: ABBVIE
  Company Number: US-ABBVIE-6311634

PATIENT
  Age: 44 Year
  Sex: Female

DRUGS (1)
  1. SKYRIZI [Suspect]
     Active Substance: RISANKIZUMAB-RZAA
     Indication: Psoriasis
     Route: 058
     Dates: start: 20250310

REACTIONS (5)
  - Hernia [Unknown]
  - Ulcer [Unknown]
  - Skin graft [Unknown]
  - Suture rupture [Recovered/Resolved]
  - Suture rupture [Unknown]

NARRATIVE: CASE EVENT DATE: 20250101
